FAERS Safety Report 12983451 (Version 1)
Quarter: 2016Q4

REPORT INFORMATION
  Report Type: Spontaneous
  Country: RU (occurrence: RU)
  Receive Date: 20161129
  Receipt Date: 20161129
  Transmission Date: 20170207
  Serious: Yes (Death)
  Sender: FDA-Public Use
  Company Number: RU-B.I. PHARMACEUTICALS,INC./RIDGEFIELD-2016-BI-081564

PATIENT
  Age: 84 Year
  Sex: Female

DRUGS (2)
  1. PRADAXA [Suspect]
     Active Substance: DABIGATRAN ETEXILATE MESYLATE
     Indication: CEREBROVASCULAR ACCIDENT PROPHYLAXIS
  2. PRADAXA [Suspect]
     Active Substance: DABIGATRAN ETEXILATE MESYLATE
     Indication: ATRIAL FIBRILLATION
     Route: 048
     Dates: start: 20151103, end: 20161004

REACTIONS (1)
  - Gastric haemorrhage [Fatal]

NARRATIVE: CASE EVENT DATE: 20161004
